FAERS Safety Report 16918807 (Version 3)
Quarter: 2024Q1

REPORT INFORMATION
  Report Type: Spontaneous
  Country: CH (occurrence: CH)
  Receive Date: 20191015
  Receipt Date: 20240214
  Transmission Date: 20240410
  Serious: Yes (Hospitalization, Other)
  Sender: FDA-Public Use
  Company Number: CH-SA-2019SA278189

PATIENT
  Age: 81 Year
  Sex: Female

DRUGS (1)
  1. AMIODARONE [Suspect]
     Active Substance: AMIODARONE
     Indication: Atrial fibrillation
     Dosage: 200 MG, 1X/DAY

REACTIONS (4)
  - Pulmonary alveolar haemorrhage [Recovering/Resolving]
  - Pneumonitis [Recovering/Resolving]
  - Alveolitis [Recovering/Resolving]
  - Respiratory rate increased [Recovering/Resolving]
